FAERS Safety Report 8214389-9 (Version None)
Quarter: 2012Q1

REPORT INFORMATION
  Report Type: 
  Country: None (occurrence: None)
  Receive Date: 20120316
  Receipt Date: 20120305
  Transmission Date: 20120608
  Serious: Yes (Hospitalization, Other)
  Sender: FDA-Public Use
  Company Number: US-ELI_LILLY_AND_COMPANY-US201203001451

PATIENT
  Sex: Male

DRUGS (12)
  1. FORTEO [Suspect]
     Indication: OSTEOPOROSIS
     Dosage: 20 UG, QD
     Route: 065
     Dates: start: 20100401
  2. ENALAPRIL MALEATE [Concomitant]
     Dosage: UNK, QD
  3. KLONOPIN [Concomitant]
     Dosage: UNK, QD
  4. CRESTOR [Concomitant]
     Dosage: UNK, QD
  5. JANUVIA [Concomitant]
     Dosage: UNK, QD
  6. GLIPIRIDE [Concomitant]
     Dosage: UNK, QD
  7. CARDIOVEL [Concomitant]
     Dosage: UNK UNK, QD
  8. BUPROFEN [Concomitant]
     Dosage: UNK, QD
  9. ZOLOFT [Concomitant]
     Dosage: UNK, QD
  10. FLOMAX [Concomitant]
     Dosage: UNK UNK, QD
     Route: 065
  11. PRILOSEC [Concomitant]
     Dosage: UNK, QD
     Route: 065
  12. CELEBREX [Concomitant]
     Dosage: UNK, QD

REACTIONS (1)
  - INTERMITTENT CLAUDICATION [None]
